FAERS Safety Report 4618764-0 (Version None)
Quarter: 2005Q1

REPORT INFORMATION
  Report Type: 
  Country: None (occurrence: None)
  Receive Date: 20050323
  Receipt Date: 20050310
  Transmission Date: 20050727
  Serious: Yes (Hospitalization)
  Sender: FDA-Public Use
  Company Number: 2005043174

PATIENT
  Age: 70 Year
  Sex: Male
  Weight: 72.5755 kg

DRUGS (5)
  1. NEURONTIN [Suspect]
     Indication: ILL-DEFINED DISORDER
     Dosage: 600 MG (300 MG, 2 IN 1 D), ORAL
     Route: 048
  2. NEURONTIN [Suspect]
     Indication: NERVE INJURY
     Dosage: 600 MG (300 MG, 2 IN 1 D), ORAL
     Route: 048
  3. ALLOPURINOL [Concomitant]
  4. LEVOTHYROXINE SODIUM [Concomitant]
  5. OEMPRAZOLE (OMEPRAZOLE0 [Concomitant]

REACTIONS (3)
  - GASTRIC DISORDER [None]
  - PARAESTHESIA [None]
  - PHARMACEUTICAL PRODUCT COMPLAINT [None]
